FAERS Safety Report 15616486 (Version 3)
Quarter: 2019Q1

REPORT INFORMATION
  Report Type: Spontaneous
  Country: GB (occurrence: GB)
  Receive Date: 20181114
  Receipt Date: 20190114
  Transmission Date: 20190417
  Serious: Yes (Hospitalization)
  Sender: FDA-Public Use
  Company Number: PHHY2018GB153289

PATIENT
  Age: 74 Year
  Sex: Male

DRUGS (4)
  1. CABAZITAXEL [Suspect]
     Active Substance: CABAZITAXEL
     Dosage: 20 MG/M2
     Route: 065
     Dates: start: 20180928
  2. DOCETAXEL. [Suspect]
     Active Substance: DOCETAXEL
     Indication: PROSTATE CANCER METASTATIC
     Dosage: 60 MG/M2, UNK
     Route: 042
     Dates: start: 20170928, end: 20170928
  3. DOCETAXEL. [Suspect]
     Active Substance: DOCETAXEL
     Dosage: 60 MG/M2, UNK
     Route: 042
     Dates: start: 20180413
  4. CABAZITAXEL [Suspect]
     Active Substance: CABAZITAXEL
     Indication: PROSTATE CANCER METASTATIC
     Dosage: 20 MG/M2, UNK
     Route: 065
     Dates: start: 20180706, end: 20180706

REACTIONS (6)
  - Confusional state [Unknown]
  - Neoplasm progression [Unknown]
  - Lung infection [Unknown]
  - Prostate cancer metastatic [Unknown]
  - Lower respiratory tract infection [Recovered/Resolved]
  - Malaise [Unknown]

NARRATIVE: CASE EVENT DATE: 20181021
